FAERS Safety Report 5094291-4 (Version None)
Quarter: 2006Q3

REPORT INFORMATION
  Report Type: 
  Country: None (occurrence: None)
  Receive Date: 20060831
  Receipt Date: 20060811
  Transmission Date: 20061208
  Serious: Yes (Congenital Anomaly, Other)
  Sender: FDA-Public Use
  Company Number: DE-BRISTOL-MYERS SQUIBB COMPANY-13473665

PATIENT
  Age: 25 Week
  Sex: Female
  Weight: 1 kg

DRUGS (5)
  1. ZERIT [Suspect]
     Indication: HIV INFECTION
     Route: 064
     Dates: start: 20060501
  2. EPIVIR [Suspect]
     Indication: HIV INFECTION
     Route: 064
     Dates: start: 20060501
  3. VIRAMUNE [Suspect]
     Indication: HIV INFECTION
     Route: 064
     Dates: start: 20060501
  4. ZIDOVUDINE [Suspect]
     Route: 064
     Dates: start: 20060425, end: 20060425
  5. FOLATE [Concomitant]
     Dosage: 1ST AND 2ND TRI-MESTER EXPOSURE
     Route: 064

REACTIONS (5)
  - CONGENITAL CYTOMEGALOVIRUS INFECTION [None]
  - DEAFNESS UNILATERAL [None]
  - DRUG EXPOSURE DURING PREGNANCY [None]
  - PREGNANCY [None]
  - PREMATURE BABY [None]
